FAERS Safety Report 23326187 (Version 1)
Quarter: 2023Q4

REPORT INFORMATION
  Report Type: Spontaneous
  Country: GB (occurrence: GB)
  Receive Date: 20231221
  Receipt Date: 20231221
  Transmission Date: 20240110
  Serious: Yes (Hospitalization)
  Sender: FDA-Public Use
  Company Number: GB-MYLANLABS-2023M1127978

PATIENT
  Age: 86 Year
  Sex: Female
  Weight: 66.6 kg

DRUGS (1)
  1. CLOZARIL [Suspect]
     Active Substance: CLOZAPINE
     Indication: Schizophrenia
     Dosage: 100 MILLIGRAM, QD (NOCTE)
     Route: 048
     Dates: start: 20050802

REACTIONS (3)
  - Pneumonia aspiration [Unknown]
  - Hypoxia [Unknown]
  - Vomiting [Unknown]

NARRATIVE: CASE EVENT DATE: 20231124
